FAERS Safety Report 10043900 (Version 1)
Quarter: 2014Q1

REPORT INFORMATION
  Report Type: Spontaneous
  Country: IQ (occurrence: IQ)
  Receive Date: 20140328
  Receipt Date: 20140328
  Transmission Date: 20141002
  Serious: Yes (Hospitalization, Other)
  Sender: FDA-Public Use
  Company Number: IQ-BRISTOL-MYERS SQUIBB COMPANY-20582060

PATIENT
  Age: 60 Year
  Sex: Female

DRUGS (3)
  1. ONGLYZA TABS [Suspect]
     Indication: TYPE 2 DIABETES MELLITUS
     Route: 048
  2. METFORMIN HCL [Suspect]
  3. SULFONYLUREA [Concomitant]

REACTIONS (1)
  - Pancreatitis acute [Recovering/Resolving]
